FAERS Safety Report 6171004-6 (Version None)
Quarter: 2009Q2

REPORT INFORMATION
  Report Type: 
  Country: None (occurrence: None)
  Receive Date: 20090429
  Receipt Date: 20090422
  Transmission Date: 20091009
  Serious: Yes (Hospitalization)
  Sender: FDA-Public Use
  Company Number: JP-BRISTOL-MYERS SQUIBB COMPANY-14577928

PATIENT
  Age: 50 Year
  Sex: Male
  Weight: 62 kg

DRUGS (7)
  1. ERBITUX [Suspect]
     Indication: RECTAL CANCER
     Dosage: DOSE REDUCED-250MG/M2 1/1 WEEK ON 3FEB09.3MAR09-RECD4TH+MOST RECENT.INTERRUPTED+RESUMED-UNK DATE
     Route: 042
     Dates: start: 20090127, end: 20090127
  2. IRINOTECAN HCL [Concomitant]
     Indication: RECTAL CANCER
     Route: 042
     Dates: start: 20090126
  3. FLUOROURACIL [Concomitant]
     Indication: RECTAL CANCER
     Dosage: TAKEN 3600MG/M2 1/2 WEEK, INTRAVENOUS DRIP FROM 26JAN2009
     Route: 040
     Dates: start: 20090126
  4. LEUCOVORIN CALCIUM [Concomitant]
     Indication: RECTAL CANCER
     Route: 042
     Dates: start: 20090126
  5. CHLOR-TRIMETON [Concomitant]
     Indication: PREMEDICATION
     Route: 042
     Dates: start: 20090127
  6. DECADRON [Concomitant]
     Indication: PREMEDICATION
     Route: 042
     Dates: start: 20090127
  7. SEROTONE [Concomitant]
     Indication: PREMEDICATION
     Dosage: 1A
     Route: 042
     Dates: start: 20090127

REACTIONS (1)
  - PROCEDURAL SITE REACTION [None]
